FAERS Safety Report 10528045 (Version 1)
Quarter: 2014Q4

REPORT INFORMATION
  Report Type: Spontaneous
  Country: HR (occurrence: HR)
  Receive Date: 20141020
  Receipt Date: 20141020
  Transmission Date: 20150528
  Serious: Yes (Life-Threatening, Other)
  Sender: FDA-Public Use
  Company Number: HR-GLAXOSMITHKLINE-HR2014GSK009129

PATIENT
  Age: 54 Year
  Sex: Female
  Weight: 61 kg

DRUGS (7)
  1. MEDROL [Concomitant]
     Active Substance: METHYLPREDNISOLONE
     Dosage: 4 MG, UNK
  2. TAFEN [Concomitant]
     Dosage: 50 UG, BID
  3. ZINNAT [Suspect]
     Active Substance: CEFUROXIME AXETIL
     Indication: CHRONIC SINUSITIS
     Dosage: 500 MG, BID
     Route: 048
     Dates: start: 201409
  4. SERETIDE [Concomitant]
     Active Substance: FLUTICASONE FUROATE\SALMETEROL XINAFOATE
     Dosage: 1 DF, BID
  5. TRITACE [Concomitant]
     Active Substance: RAMIPRIL
     Dosage: 5 MG, QD
  6. FLOSTERON [Concomitant]
     Dosage: DF= 2MG OF BETAMETHASONE IN THE FORM OF BETAMETHASONE SODIUM PHOSPHATE AND 5 MG OF BETAMETHASONE D
  7. BELODIN [Concomitant]
     Dosage: 10 MG, QD

REACTIONS (2)
  - Anaphylactic shock [Recovered/Resolved with Sequelae]
  - Choking sensation [Recovered/Resolved with Sequelae]

NARRATIVE: CASE EVENT DATE: 201409
